FAERS Safety Report 8604463-7 (Version None)
Quarter: 2012Q3

REPORT INFORMATION
  Report Type: 
  Country: None (occurrence: None)
  Receive Date: 20120820
  Receipt Date: 20120807
  Transmission Date: 20120928
  Serious: Yes (Other)
  Sender: FDA-Public Use
  Company Number: FR-MPIJNJ-2012-03752

PATIENT

DRUGS (6)
  1. ZELITREX                           /01269701/ [Concomitant]
     Dosage: UNK
     Dates: start: 20120221
  2. MABTHERA [Suspect]
     Indication: MANTLE CELL LYMPHOMA
     Dosage: 650 MG, UNK
     Route: 042
     Dates: start: 20120221, end: 20120417
  3. DEXAMETHASONE [Suspect]
     Indication: MANTLE CELL LYMPHOMA
     Dosage: 40 MG, UNK
     Route: 042
     Dates: start: 20120222, end: 20120418
  4. VELCADE [Suspect]
     Indication: MANTLE CELL LYMPHOMA
     Dosage: 2.2 MG, UNK
     Route: 058
     Dates: start: 20120221, end: 20120418
  5. BENDAMUSTINE HYDROCHLORIDE [Suspect]
     Indication: MANTLE CELL LYMPHOMA
     Dosage: 156 MG, UNK
     Route: 042
     Dates: start: 20120221, end: 20120418
  6. BACTRIM [Concomitant]
     Dosage: UNK
     Dates: start: 20120221

REACTIONS (2)
  - HERPES ZOSTER [None]
  - MUSCULOSKELETAL CHEST PAIN [None]
